FAERS Safety Report 10146172 (Version 2)
Quarter: 2014Q2

REPORT INFORMATION
  Report Type: Spontaneous
  Country: US (occurrence: US)
  Receive Date: 20140501
  Receipt Date: 20140603
  Transmission Date: 20141212
  Serious: Yes (Hospitalization)
  Sender: FDA-Public Use
  Company Number: US-PFIZER INC-2014115614

PATIENT
  Sex: 0

DRUGS (1)
  1. REVATIO [Suspect]
     Dosage: UNK

REACTIONS (1)
  - Pneumonia [Unknown]
